FAERS Safety Report 20429608 (Version 1)
Quarter: 2022Q1

REPORT INFORMATION
  Report Type: Spontaneous
  Country: US (occurrence: None)
  Receive Date: 20220203
  Receipt Date: 20220203
  Transmission Date: 20220423
  Serious: Yes (Death)
  Sender: FDA-Public Use
  Company Number: None

PATIENT
  Age: 75 Year
  Sex: Female
  Weight: 81 kg

DRUGS (1)
  1. BUPIVACAINE HYDROCHLORIDE\EPINEPHRINE [Suspect]
     Active Substance: BUPIVACAINE HYDROCHLORIDE\EPINEPHRINE
     Indication: Nerve block
     Dates: start: 20220119, end: 20220119

REACTIONS (1)
  - Local anaesthetic systemic toxicity [None]

NARRATIVE: CASE EVENT DATE: 20220119
